FAERS Safety Report 4303316-2 (Version None)
Quarter: 2004Q1

REPORT INFORMATION
  Report Type: 
  Country: None (occurrence: None)
  Receive Date: 20040223
  Receipt Date: 20040210
  Transmission Date: 20041129
  Serious: Yes (Other)
  Sender: FDA-Public Use
  Company Number: US-SHR-04-021068

PATIENT
  Age: 18 Year
  Sex: Female
  Weight: 47.6 kg

DRUGS (6)
  1. YASMIN [Suspect]
     Indication: MENSTRUATION IRREGULAR
     Dosage: 1 TAB(S), 1X/DAY, ORAL
     Route: 048
     Dates: start: 20030601
  2. SPIRONOLACTONE IMPLANT [Concomitant]
  3. WELLBUTRIN [Concomitant]
  4. MULTIVITAMINS (PANTHENOL, RETINOL) [Concomitant]
  5. VITAMIN E [Concomitant]
  6. IRON (IRON) [Concomitant]

REACTIONS (9)
  - OLIGOMENORRHOEA [None]
  - PAIN [None]
  - SCAR [None]
  - TREATMENT NONCOMPLIANCE [None]
  - VAGINAL BURNING SENSATION [None]
  - VAGINAL CANCER [None]
  - VAGINAL HAEMORRHAGE [None]
  - VAGINAL ODOUR [None]
  - VULVAL CANCER [None]
